FAERS Safety Report 9264511 (Version 4)
Quarter: 2013Q4

REPORT INFORMATION
  Report Type: Spontaneous
  Country: JP (occurrence: JP)
  Receive Date: 20130501
  Receipt Date: 20131024
  Transmission Date: 20140711
  Serious: Yes (Hospitalization)
  Sender: FDA-Public Use
  Company Number: JP-AMGEN-JPNSP2013029365

PATIENT
  Age: 64 Year
  Sex: Male

DRUGS (7)
  1. VECTIBIX [Suspect]
     Indication: COLON CANCER
     Dosage: UNK
     Route: 041
     Dates: start: 201302
  2. CAMPTO [Concomitant]
     Indication: COLON CANCER
     Dosage: UNK
     Route: 041
     Dates: start: 20130401
  3. 5-FU                               /00098801/ [Concomitant]
     Indication: COLON CANCER
     Dosage: UNK
     Route: 042
     Dates: start: 20130401
  4. LEVOFOLINATE [Concomitant]
     Indication: COLON CANCER
     Dosage: UNK
     Route: 041
     Dates: start: 20130401
  5. PROEMEND [Concomitant]
     Dosage: UNK
     Route: 042
  6. DECADRON                           /00016001/ [Concomitant]
     Dosage: UNK
     Route: 065
  7. NASEA [Concomitant]
     Dosage: UNK
     Route: 042

REACTIONS (2)
  - Impetigo [Recovered/Resolved]
  - Dermatitis acneiform [Unknown]
